FAERS Safety Report 8020665-5 (Version None)
Quarter: 2012Q1

REPORT INFORMATION
  Report Type: 
  Country: None (occurrence: None)
  Receive Date: 20120103
  Receipt Date: 20111222
  Transmission Date: 20120608
  Serious: Yes (Hospitalization)
  Sender: FDA-Public Use
  Company Number: FR-ASTRAZENECA-2011SE67212

PATIENT
  Age: 62 Year
  Sex: Male

DRUGS (1)
  1. ZOMIG [Suspect]
     Indication: MIGRAINE
     Route: 048
     Dates: end: 20000101

REACTIONS (1)
  - MYOCARDIAL INFARCTION [None]
